FAERS Safety Report 5876635-6 (Version None)
Quarter: 2008Q3

REPORT INFORMATION
  Report Type: 
  Country: None (occurrence: None)
  Receive Date: 20080910
  Receipt Date: 20080903
  Transmission Date: 20090109
  Serious: Yes (Other)
  Sender: FDA-Public Use
  Company Number: US-ASTRAZENECA-2008UW18063

PATIENT
  Age: 12 Year
  Sex: Male

DRUGS (3)
  1. SEROQUEL [Suspect]
     Route: 048
  2. MORPHINE [Suspect]
  3. FOCALIN XR [Concomitant]

REACTIONS (7)
  - ABDOMINAL INJURY [None]
  - BLOOD PRESSURE DECREASED [None]
  - DRUG INTERACTION [None]
  - HEART RATE DECREASED [None]
  - HYPOTHERMIA [None]
  - SHOCK [None]
  - VOMITING [None]
